FAERS Safety Report 19929584 (Version 6)
Quarter: 2022Q2

REPORT INFORMATION
  Report Type: Report from Study
  Country: US (occurrence: US)
  Receive Date: 20211007
  Receipt Date: 20220403
  Transmission Date: 20220720
  Serious: Yes (Hospitalization)
  Sender: FDA-Public Use
  Company Number: US-SANOFI-00770711

PATIENT
  Age: 65 Year
  Sex: Female

DRUGS (2)
  1. DUPILUMAB [Suspect]
     Active Substance: DUPILUMAB
     Indication: Dermatitis atopic
     Dosage: 600 MG, 1X
     Route: 058
     Dates: start: 20210901, end: 20210901
  2. DUPILUMAB [Suspect]
     Active Substance: DUPILUMAB
     Dosage: 300 MG, QOW
     Route: 058

REACTIONS (13)
  - Mental disorder [Recovering/Resolving]
  - Stress [Unknown]
  - Weight increased [Unknown]
  - Skin swelling [Recovering/Resolving]
  - Pruritus [Recovering/Resolving]
  - Injection site haemorrhage [Unknown]
  - Crying [Unknown]
  - Frustration tolerance decreased [Unknown]
  - Insomnia [Unknown]
  - Anxiety [Unknown]
  - Skin hypertrophy [Not Recovered/Not Resolved]
  - Dermatitis atopic [Unknown]
  - Drug ineffective [Unknown]

NARRATIVE: CASE EVENT DATE: 20210101
